FAERS Safety Report 8561591-2 (Version None)
Quarter: 2012Q3

REPORT INFORMATION
  Report Type: 
  Country: None (occurrence: None)
  Receive Date: 20120802
  Receipt Date: 20120718
  Transmission Date: 20120928
  Serious: No
  Sender: FDA-Public Use
  Company Number: US-ASTRAZENECA-2012SE50759

PATIENT
  Age: 85 Year
  Sex: Male
  Weight: 95.3 kg

DRUGS (6)
  1. NEXIUM [Suspect]
     Indication: GASTROOESOPHAGEAL REFLUX DISEASE
     Route: 048
  2. LASIK [Concomitant]
  3. RISPERDAL [Concomitant]
  4. XANAX [Concomitant]
  5. DILTIAZEM [Concomitant]
  6. WARFARIN [Concomitant]

REACTIONS (4)
  - DEMENTIA [None]
  - VOMITING [None]
  - MALAISE [None]
  - DRUG DOSE OMISSION [None]
